FAERS Safety Report 9149356 (Version 2)
Quarter: 2013Q2

REPORT INFORMATION
  Report Type: Spontaneous
  Country: IT (occurrence: IT)
  Receive Date: 20130308
  Receipt Date: 20130403
  Transmission Date: 20140414
  Serious: Yes (Hospitalization)
  Sender: FDA-Public Use
  Company Number: IT-BRISTOL-MYERS SQUIBB COMPANY-17430661

PATIENT
  Age: 37 Year
  Sex: Female

DRUGS (7)
  1. ETOPOSIDE [Suspect]
     Indication: ADRENOCORTICAL CARCINOMA
     Dosage: 1 DF: 100MG/MQ
     Route: 042
     Dates: start: 20121214, end: 20121227
  2. CISPLATIN [Suspect]
     Indication: ADRENOCORTICAL CARCINOMA
     Dosage: 1 DF: 40MG/MQ
     Route: 042
     Dates: start: 20121214, end: 20121227
  3. DOXORUBICIN HCL [Suspect]
     Indication: ADRENOCORTICAL CARCINOMA
     Dosage: 1 DF: 40MG/MQ
     Route: 042
     Dates: start: 20121214, end: 20121227
  4. EUTIROX [Concomitant]
     Dosage: FORM :EUTIROX ^75 MCG TABLETS
  5. CORTONE ACETATE [Concomitant]
     Dosage: CORTONE ACETATE 25 MG TABLETS
  6. SELEPARINA [Concomitant]
  7. MITOTANE [Concomitant]

REACTIONS (1)
  - Pulmonary embolism [Recovered/Resolved]
